FAERS Safety Report 20193174 (Version 2)
Quarter: 2022Q1

REPORT INFORMATION
  Report Type: Spontaneous
  Country: GB (occurrence: GB)
  Receive Date: 20211216
  Receipt Date: 20220206
  Transmission Date: 20220424
  Serious: Yes (Hospitalization, Other)
  Sender: FDA-Public Use
  Company Number: None

PATIENT
  Age: 72 Year
  Sex: Female

DRUGS (77)
  1. DOCETAXEL [Suspect]
     Active Substance: DOCETAXEL
     Indication: HER2 positive breast cancer
     Dosage: 92 MILLIGRAM, EVERY 3 WEEKS (92 MG, TIW)
     Route: 065
     Dates: start: 20150514, end: 20150715
  2. DOCETAXEL [Suspect]
     Active Substance: DOCETAXEL
     Dosage: 86 MILLIGRAM, EVERY 3 WEEKS (86 MG, Q3W)
     Route: 065
     Dates: start: 20150828, end: 20150918
  3. DOCETAXEL [Suspect]
     Active Substance: DOCETAXEL
     Dosage: 368MG
     Route: 065
  4. EXEMESTANE [Suspect]
     Active Substance: EXEMESTANE
     Indication: HER2 positive breast cancer
     Dosage: 25 MILLIGRAM DAILY;
     Route: 048
     Dates: start: 20151013, end: 201604
  5. PERTUZUMAB [Suspect]
     Active Substance: PERTUZUMAB
     Indication: HER2 positive breast cancer
     Dosage: 420 MILLIGRAM, TIW
     Route: 042
     Dates: start: 20150603, end: 20150807
  6. ADO-TRASTUZUMAB EMTANSINE [Suspect]
     Active Substance: ADO-TRASTUZUMAB EMTANSINE
     Indication: HER2 positive breast cancer
     Dosage: 148 MILLIGRAM, Q3W
     Route: 042
     Dates: end: 20170419
  7. ADO-TRASTUZUMAB EMTANSINE [Suspect]
     Active Substance: ADO-TRASTUZUMAB EMTANSINE
     Dosage: 184 MILLIGRAM, Q3W
     Route: 042
     Dates: end: 20160720
  8. ADO-TRASTUZUMAB EMTANSINE [Suspect]
     Active Substance: ADO-TRASTUZUMAB EMTANSINE
     Dosage: 160 MILLIGRAM, Q3W
     Route: 042
     Dates: end: 20180808
  9. ADO-TRASTUZUMAB EMTANSINE [Suspect]
     Active Substance: ADO-TRASTUZUMAB EMTANSINE
     Dosage: 184 MILLIGRAM, Q3W/ START DATE: 26-APR-2016
     Route: 042
     Dates: end: 20160720
  10. TRASTUZUMAB [Suspect]
     Active Substance: TRASTUZUMAB
     Indication: HER2 positive breast cancer
     Dosage: 400 MILLIGRAM, Q3W
     Route: 042
     Dates: start: 20150513, end: 20150513
  11. TRASTUZUMAB [Suspect]
     Active Substance: TRASTUZUMAB
     Indication: Breast cancer metastatic
     Dosage: 300 MILLIGRAM, Q3W
     Route: 042
     Dates: start: 20150603, end: 20150804
  12. TRASTUZUMAB [Suspect]
     Active Substance: TRASTUZUMAB
     Dosage: 275 MILLIGRAM, Q3W
     Route: 042
     Dates: start: 20150918, end: 20151211
  13. TRASTUZUMAB [Suspect]
     Active Substance: TRASTUZUMAB
     Dosage: 300 MILLIGRAM, Q3W
     Route: 042
     Dates: start: 20160108, end: 20160405
  14. TRASTUZUMAB [Suspect]
     Active Substance: TRASTUZUMAB
     Dosage: 300 MILLIGRAM, UNK
     Route: 042
     Dates: start: 20150603, end: 20150828
  15. TRASTUZUMAB [Suspect]
     Active Substance: TRASTUZUMAB
     Dosage: 300 MILLIGRAM, UNK, THERAPY START AND END DATE: NASK
     Route: 042
  16. TRASTUZUMAB [Suspect]
     Active Substance: TRASTUZUMAB
     Dosage: 148 MILLIGRAM, 3XW/ START DATE: 10-AUG-2016
     Route: 042
     Dates: start: 20160810, end: 20170419
  17. TRASTUZUMAB [Suspect]
     Active Substance: TRASTUZUMAB
     Dosage: 184 MILLIGRAM, Q3W/ START DATE: 26-APR-2016
     Route: 042
     Dates: end: 20160720
  18. TRASTUZUMAB [Suspect]
     Active Substance: TRASTUZUMAB
     Dosage: 275 MILLIGRAM, 3XW/ START DATE:18-AUG-2015
     Route: 042
     Dates: end: 20151211
  19. TRASTUZUMAB [Suspect]
     Active Substance: TRASTUZUMAB
     Dosage: 300 MILLIGRAM, 3XW/ START DATE: 03-JUN-2015
     Route: 042
     Dates: start: 20150603, end: 20150604
  20. TRASTUZUMAB [Suspect]
     Active Substance: TRASTUZUMAB
     Dosage: 160 MILLIGRAM, Q3W/ START DATE: 10-MAY-2017
     Route: 042
     Dates: start: 20170510, end: 20180808
  21. TRASTUZUMAB [Suspect]
     Active Substance: TRASTUZUMAB
     Dosage: 300 MILLIGRAM, 3XW/ START DATE: 08-JAN-2016
     Route: 042
     Dates: end: 20160405
  22. TRASTUZUMAB [Suspect]
     Active Substance: TRASTUZUMAB
     Dosage: 300 MILLIGRAM, 3XW// STAT DATE: 03-JUN-2015
     Route: 042
     Dates: end: 20150804
  23. TRASTUZUMAB [Suspect]
     Active Substance: TRASTUZUMAB
     Dosage: 400 MILLIGRAM, QWK
     Route: 042
     Dates: start: 20170510, end: 20180808
  24. NERATINIB [Suspect]
     Active Substance: NERATINIB
     Indication: HER2 positive breast cancer
     Dosage: 240 MILLIGRAM DAILY;
     Route: 048
     Dates: start: 20180825, end: 201811
  25. HERCEPTIN [Suspect]
     Active Substance: TRASTUZUMAB
     Dosage: 300 MILLIGRAM, Q3WK
     Route: 042
     Dates: start: 20160108, end: 20160405
  26. POTASSIUM CHLORIDE [Concomitant]
     Active Substance: POTASSIUM CHLORIDE
     Indication: Product used for unknown indication
     Dosage: 2 DOSAGE FORMS DAILY;
     Route: 048
     Dates: start: 20181120, end: 20181125
  27. AMOXYCILLIN [AMOXICILLIN] [Concomitant]
     Indication: Infection
     Dosage: 1500 MILLIGRAM DAILY;
     Route: 048
     Dates: start: 20150804, end: 20150810
  28. AMOXYCILLIN [AMOXICILLIN] [Concomitant]
     Dosage: 625 MILLIGRAM DAILY;
     Route: 048
     Dates: start: 20150804, end: 20150810
  29. DOMPERIDONE [Concomitant]
     Active Substance: DOMPERIDONE
     Indication: Prophylaxis
     Dosage: 10 MILLIGRAM DAILY;
     Route: 048
     Dates: start: 20150803, end: 20150805
  30. DOMPERIDONE [Concomitant]
     Active Substance: DOMPERIDONE
     Dosage: 30 MILLIGRAM DAILY; THERAPY END DATE: NASK
     Route: 048
     Dates: start: 20150803
  31. RANITIDINE [Concomitant]
     Active Substance: RANITIDINE
     Indication: Product used for unknown indication
     Dosage: 150 MILLIGRAM DAILY;
     Route: 048
     Dates: start: 20150825, end: 20150827
  32. RANITIDINE [Concomitant]
     Active Substance: RANITIDINE
     Dosage: 150 MILLIGRAM DAILY;
     Route: 048
     Dates: start: 20150805, end: 20150807
  33. RANITIDINE [Concomitant]
     Active Substance: RANITIDINE
     Dosage: 300 MILLIGRAM DAILY;
     Route: 048
     Dates: start: 20150805, end: 20150807
  34. RANITIDINE [Concomitant]
     Active Substance: RANITIDINE
     Dosage: 300 MILLIGRAM DAILY; THERAPY END DATE: NASK
     Route: 065
     Dates: start: 20150825
  35. CETIRIZINE [Concomitant]
     Active Substance: CETIRIZINE HYDROCHLORIDE
     Indication: Product used for unknown indication
     Dosage: 1 DOSAGE FORMS DAILY;  (1 OT, QD)
     Route: 048
     Dates: start: 20150825, end: 20150827
  36. CETIRIZINE [Concomitant]
     Active Substance: CETIRIZINE HYDROCHLORIDE
     Dosage: 10 MILLIGRAM DAILY;
     Route: 048
     Dates: start: 20150805, end: 20150807
  37. CETIRIZINE [Concomitant]
     Active Substance: CETIRIZINE HYDROCHLORIDE
     Dosage: THERAPY START DATE: NASK, 10 MILLIGRAM, UNK
     Route: 048
     Dates: end: 20190406
  38. CETIRIZINE [Concomitant]
     Active Substance: CETIRIZINE HYDROCHLORIDE
     Dosage: 10 MILLIGRAM DAILY;
     Route: 048
     Dates: start: 20150805, end: 20190406
  39. DEXAMETHASONE [Concomitant]
     Active Substance: DEXAMETHASONE
     Indication: Product used for unknown indication
     Dosage: 2 MILLIGRAM DAILY; 2 MILLIGRAM, UNK, 2 MILLIGRAM THREE DAYS PRIOR TO CHEMOTHERAPY
     Route: 048
     Dates: start: 20150803, end: 20150805
  40. DEXAMETHASONE [Concomitant]
     Active Substance: DEXAMETHASONE
     Dosage: 5 ML DAILY; LIQUID,
     Route: 047
     Dates: start: 20150714, end: 20150923
  41. DEXAMETHASONE [Concomitant]
     Active Substance: DEXAMETHASONE
     Dosage: 2 MILLIGRAM, UNK
     Route: 048
     Dates: start: 20181002, end: 20181212
  42. DEXAMETHASONE [Concomitant]
     Active Substance: DEXAMETHASONE
     Dosage: 8 MILLIGRAM DAILY;
     Route: 048
     Dates: start: 20150803, end: 20150805
  43. DEXAMETHASONE [Concomitant]
     Active Substance: DEXAMETHASONE
     Dosage: 20 ML DAILY; (LIQUID)
     Route: 047
     Dates: start: 20150714, end: 20150923
  44. DEXAMETHASONE [Concomitant]
     Active Substance: DEXAMETHASONE
     Dosage: 5 ML DAILY;
     Route: 047
     Dates: start: 20150714, end: 20150923
  45. DEXAMETHASONE [Concomitant]
     Active Substance: DEXAMETHASONE
     Dosage: 4 MILLIGRAM DAILY;
     Route: 048
     Dates: start: 20150803, end: 20150805
  46. DEXAMETHASONE [Concomitant]
     Active Substance: DEXAMETHASONE
     Dosage: 2 MILLIGRAM/ SATRT DATE:02-OCT-2018
     Route: 048
     Dates: end: 20181212
  47. LANSOPRAZOLE [Concomitant]
     Active Substance: LANSOPRAZOLE
     Indication: Abdominal discomfort
     Dosage: 30 MILLIGRAM DAILY; 30 MILLIGRAM, QD
     Route: 048
     Dates: start: 20181002, end: 201901
  48. LANSOPRAZOLE [Concomitant]
     Active Substance: LANSOPRAZOLE
     Indication: Product used for unknown indication
     Dosage: 30 MILLIGRAM DAILY; 30 MILLIGRAM, UNK (GENERICS UK LANSOPRAZOLE)
     Route: 048
     Dates: start: 20181002, end: 201901
  49. OXYCODONE [Concomitant]
     Active Substance: OXYCODONE
     Indication: Product used for unknown indication
     Dosage: 1.25 MILLIGRAM, UNK
     Route: 058
     Dates: start: 201901, end: 20190406
  50. OMEPRAZOLE [Concomitant]
     Active Substance: OMEPRAZOLE
     Indication: Prophylaxis
     Dosage: 20 MILLIGRAM
     Route: 048
     Dates: start: 201901, end: 20190406
  51. OMEPRAZOLE [Concomitant]
     Active Substance: OMEPRAZOLE
     Indication: Product used for unknown indication
  52. POTASSIUM BICARBONATE\POTASSIUM CHLORIDE [Concomitant]
     Active Substance: POTASSIUM BICARBONATE\POTASSIUM CHLORIDE
     Indication: Product used for unknown indication
     Dosage: 4 DOSAGE FORMS DAILY; 4 DOSAGE FORM, QD
     Route: 048
     Dates: start: 20181120, end: 20181125
  53. POTASSIUM BICARBONATE\POTASSIUM CHLORIDE [Concomitant]
     Active Substance: POTASSIUM BICARBONATE\POTASSIUM CHLORIDE
     Dosage: UNK
     Route: 048
     Dates: start: 20180605, end: 20180607
  54. BUDESONIDE [Concomitant]
     Active Substance: BUDESONIDE
     Indication: Product used for unknown indication
     Dosage: 9 MILLIGRAM, UNK
     Route: 048
     Dates: start: 20181025, end: 20181114
  55. GLYCOPYRROLATE [Concomitant]
     Active Substance: GLYCOPYRROLATE
     Indication: Product used for unknown indication
     Dosage: 200 MICROGRAM, UNK
     Route: 058
     Dates: start: 201901, end: 20190406
  56. MIDAZOLAM [Concomitant]
     Active Substance: MIDAZOLAM
     Indication: Product used for unknown indication
     Dosage: 2.5 MILLIGRAM, UNK
     Route: 058
     Dates: start: 201901, end: 20190406
  57. CLAVULANIC ACID [Concomitant]
     Active Substance: CLAVULANIC ACID
     Indication: Infection
     Dosage: 125 MILLIGRAM DAILY;
     Route: 048
     Dates: start: 20150804, end: 20150810
  58. CYCLIZINE [Concomitant]
     Active Substance: CYCLIZINE
     Indication: Product used for unknown indication
     Dosage: 50 MILLIGRAM, 50 MG
     Route: 058
     Dates: start: 201901, end: 20190406
  59. AMOXICILLIN\CLAVULANATE POTASSIUM [Concomitant]
     Active Substance: AMOXICILLIN\CLAVULANATE POTASSIUM
     Indication: Product used for unknown indication
     Dosage: 1875 MILLIGRAM DAILY;
     Route: 048
     Dates: start: 20150804, end: 20150810
  60. AMOXICILLIN\CLAVULANATE POTASSIUM [Concomitant]
     Active Substance: AMOXICILLIN\CLAVULANATE POTASSIUM
     Dosage: 625 MILLIGRAM, UNK
     Route: 048
     Dates: start: 20180923, end: 20180930
  61. LACTULOSE [Concomitant]
     Active Substance: LACTULOSE
     Indication: Product used for unknown indication
     Dosage: 20 ML, 20 MILLILITER, OD (20 ML, M3)
     Route: 048
     Dates: start: 201901, end: 20190406
  62. LEVETIRACETAM [Concomitant]
     Active Substance: LEVETIRACETAM
     Indication: Product used for unknown indication
     Dosage: 500 MILLIGRAM DAILY; \
     Route: 048
     Dates: start: 20180918, end: 20190406
  63. LEVETIRACETAM [Concomitant]
     Active Substance: LEVETIRACETAM
     Dosage: 1000 MILLIGRAM DAILY; \
     Route: 048
     Dates: start: 20180918, end: 20190406
  64. LOPERAMIDE [Concomitant]
     Active Substance: LOPERAMIDE
     Indication: Product used for unknown indication
     Dosage: 2 MILLIGRAM, UNK
     Route: 048
     Dates: start: 20181025, end: 20190406
  65. SENNOSIDE B [Concomitant]
     Active Substance: SENNOSIDE B
     Indication: Constipation
     Dosage: 15 MILLIGRAM, UNK
     Route: 048
     Dates: start: 20160809, end: 20190406
  66. SENNOSIDE B [Concomitant]
     Active Substance: SENNOSIDE B
     Dosage: 30 MILLIGRAM DAILY;
     Route: 048
     Dates: start: 20160809, end: 20190406
  67. CALAMINE [Concomitant]
     Active Substance: CALAMINE\FERRIC OXIDE RED\ZINC OXIDE
     Indication: Product used for unknown indication
     Dosage: UNK
     Route: 061
     Dates: start: 201508, end: 201601
  68. LORAZEPAM [Concomitant]
     Active Substance: LORAZEPAM
     Indication: Insomnia
     Dosage: 0.5 MILLIGRAM, UNK
     Route: 048
     Dates: start: 20160830, end: 20190406
  69. LORAZEPAM [Concomitant]
     Active Substance: LORAZEPAM
     Indication: Panic attack
     Dosage: 2 MILLIGRAM, UNK
     Route: 042
     Dates: start: 20180917, end: 20180918
  70. TICARCILLIN [Concomitant]
     Active Substance: TICARCILLIN
     Indication: Infection
     Dosage: 125 MILLIGRAM DAILY;
     Route: 048
     Dates: start: 20150804, end: 20150810
  71. CHLORPHENIRAMINE MALEATE [Concomitant]
     Active Substance: CHLORPHENIRAMINE MALEATE
     Indication: Pruritus
     Dosage: 10 MILLIGRAM, UNK
     Route: 042
     Dates: start: 20150807, end: 20150807
  72. CALAMINE [Concomitant]
     Active Substance: CALAMINE\FERRIC OXIDE RED\ZINC OXIDE
     Indication: Dry skin
     Dosage: CALAMINE [CALAMINE;GLYCEROL;ZINC OXIDE], UNK
     Route: 061
     Dates: start: 201508, end: 201601
  73. HYDROCORTISONE [Concomitant]
     Active Substance: HYDROCORTISONE
     Indication: Pruritus
     Dosage: 100 MILLIGRAM, 100 MG
     Route: 042
     Dates: start: 20150807, end: 20150807
  74. HYPROMELLOSES [Concomitant]
     Active Substance: HYPROMELLOSES
     Indication: Lacrimation increased
     Dosage: 3 DOSAGE FORMS DAILY; 3 DOSAGE FORM, QD (3 OT, QD), THERAPY START DATE: NASK
     Route: 047
     Dates: end: 20160401
  75. HYPROMELLOSES [Concomitant]
     Active Substance: HYPROMELLOSES
     Dosage: UNK, 0.33, THERAPY START DATE: NASK
     Route: 047
     Dates: end: 20160401
  76. SIMETHICONE EMULSION [Concomitant]
     Dosage: UNK
  77. 3M CAVILON ANTIFUNGAL [Concomitant]
     Active Substance: MICONAZOLE NITRATE
     Indication: Prophylaxis
     Route: 061

REACTIONS (25)
  - Neuropathy peripheral [Recovered/Resolved]
  - Anaphylactic reaction [Recovering/Resolving]
  - Appendicitis [Recovered/Resolved]
  - Hypokalaemia [Recovered/Resolved]
  - Hypokalaemia [Recovered/Resolved]
  - Seizure [Recovered/Resolved]
  - Seizure [Recovered/Resolved]
  - Dementia [Recovered/Resolved]
  - Neuropathy peripheral [Recovered/Resolved]
  - Off label use [Unknown]
  - Diarrhoea [Recovered/Resolved]
  - Constipation [Not Recovered/Not Resolved]
  - Panic attack [Not Recovered/Not Resolved]
  - Nail dystrophy [Recovered/Resolved]
  - Lacrimation increased [Recovered/Resolved]
  - Insomnia [Not Recovered/Not Resolved]
  - Axillary pain [Recovered/Resolved]
  - Ejection fraction decreased [Unknown]
  - Chest discomfort [Recovered/Resolved]
  - Catheter site haemorrhage [Recovered/Resolved]
  - Pruritus [Recovered/Resolved]
  - Fatigue [Recovered/Resolved]
  - Dry skin [Recovered/Resolved]
  - Memory impairment [Recovered/Resolved]
  - Amnesia [Not Recovered/Not Resolved]

NARRATIVE: CASE EVENT DATE: 20150624
